FAERS Safety Report 15727187 (Version 1)
Quarter: 2018Q4

REPORT INFORMATION
  Report Type: Spontaneous
  Country: NL (occurrence: NL)
  Receive Date: 20181217
  Receipt Date: 20181217
  Transmission Date: 20190205
  Serious: Yes (Hospitalization)
  Sender: FDA-Public Use
  Company Number: NL-ROCHE-2228215

PATIENT
  Age: 51 Year
  Sex: Female
  Weight: 70 kg

DRUGS (8)
  1. MIDAZOLAM [Concomitant]
     Active Substance: MIDAZOLAM HYDROCHLORIDE
     Route: 065
  2. PERTUZUMAB. [Concomitant]
     Active Substance: PERTUZUMAB
     Route: 065
  3. PERINDOPRIL [Concomitant]
     Active Substance: PERINDOPRIL
     Route: 065
  4. DOCETAXEL. [Concomitant]
     Active Substance: DOCETAXEL
  5. NAPROXEN. [Concomitant]
     Active Substance: NAPROXEN
     Route: 065
  6. METOPROLOL. [Concomitant]
     Active Substance: METOPROLOL
     Route: 065
  7. HERCEPTIN [Suspect]
     Active Substance: TRASTUZUMAB
     Indication: BREAST CANCER
     Dosage: 1 X PER 3 WEKEN?LAST DOSE ON 05/OCT/2018
     Route: 042
     Dates: start: 20180713
  8. NORTRILEN [Concomitant]
     Active Substance: NORTRIPTYLINE
     Route: 065

REACTIONS (11)
  - Paresis [Recovering/Resolving]
  - Cardiac disorder [Recovering/Resolving]
  - Peripheral coldness [Recovering/Resolving]
  - Muscle spasms [Recovering/Resolving]
  - Guillain-Barre syndrome [Recovering/Resolving]
  - Paraesthesia [Recovering/Resolving]
  - Neuropathy peripheral [Recovering/Resolving]
  - Weight decreased [Recovering/Resolving]
  - Vision blurred [Recovering/Resolving]
  - Abdominal pain [Recovering/Resolving]
  - Facial spasm [Recovering/Resolving]

NARRATIVE: CASE EVENT DATE: 20181013
